FAERS Safety Report 8964274 (Version 1)
Quarter: 2012Q4

REPORT INFORMATION
  Report Type: 
  Country: US (occurrence: US)
  Receive Date: 20121214
  Receipt Date: 20121214
  Transmission Date: 20130627
  Serious: No
  Sender: FDA-Public Use
  Company Number: US-GLAXOSMITHKLINE-A0957727A

PATIENT
  Age: 87 Year
  Sex: Male

DRUGS (9)
  1. AVODART [Suspect]
     Indication: BENIGN PROSTATIC HYPERPLASIA
     Dosage: 1CAP Single dose
     Route: 048
     Dates: start: 20111202, end: 20111202
  2. ASPIRIN [Concomitant]
  3. CELEBREX [Concomitant]
  4. IBUPROFEN [Concomitant]
  5. ALLOPURINOL [Concomitant]
  6. LOPRESSOR [Concomitant]
  7. FLOMAX [Concomitant]
  8. COLACE [Concomitant]
  9. VITAMIN D3 [Concomitant]

REACTIONS (2)
  - Dermatitis [Recovering/Resolving]
  - Rash pruritic [Unknown]
